FAERS Safety Report 23668694 (Version 1)
Quarter: 2024Q1

REPORT INFORMATION
  Report Type: Spontaneous
  Country: FR (occurrence: FR)
  Receive Date: 20240325
  Receipt Date: 20240325
  Transmission Date: 20240409
  Serious: Yes (Other)
  Sender: FDA-Public Use
  Company Number: None

PATIENT
  Age: 4 Month
  Sex: Male
  Weight: 3 kg

DRUGS (6)
  1. LINEZOLID [Suspect]
     Active Substance: LINEZOLID
     Indication: Lung disorder
     Dosage: 30 MG/KG, 1X/DAY
     Route: 048
     Dates: start: 20240213, end: 20240306
  2. ESOMEPRAZOLE MAGNESIUM [Concomitant]
     Active Substance: ESOMEPRAZOLE MAGNESIUM
     Indication: Prophylaxis against gastrointestinal ulcer
     Dosage: 3 MG, 1X/DAY
     Route: 048
     Dates: start: 20240205
  3. SODIUM FEREDETATE [Concomitant]
     Active Substance: SODIUM FEREDETATE
     Indication: Mineral supplementation
     Dosage: 1 DF, 1X/DAY
     Route: 048
     Dates: start: 20240227
  4. HYDROCORTISONE [Concomitant]
     Active Substance: HYDROCORTISONE
     Indication: Prophylaxis
     Dosage: 2 MG, 1X/DAY
     Route: 048
     Dates: start: 20240206
  5. ORAMORPH SR SUSTAINED RELEASE [Concomitant]
     Active Substance: MORPHINE SULFATE
     Indication: Analgesic intervention supportive therapy
     Dosage: 3 MG, 1X/DAY
     Route: 048
     Dates: start: 20240227
  6. ACETAMINOPHEN [Concomitant]
     Active Substance: ACETAMINOPHEN
     Indication: Analgesic intervention supportive therapy
     Dosage: UNK
     Route: 048

REACTIONS (3)
  - Lactic acidosis [Recovering/Resolving]
  - Pulmonary arterial hypertension [Not Recovered/Not Resolved]
  - Off label use [Unknown]

NARRATIVE: CASE EVENT DATE: 20240213
